FAERS Safety Report 13726719 (Version 1)
Quarter: 2017Q3

REPORT INFORMATION
  Report Type: Spontaneous
  Country: US (occurrence: US)
  Receive Date: 20170707
  Receipt Date: 20170707
  Transmission Date: 20171127
  Serious: No
  Sender: FDA-Public Use
  Company Number: None

PATIENT
  Sex: Female

DRUGS (4)
  1. LIDOCAINE PATCH [Suspect]
     Active Substance: LIDOCAINE
     Route: 061
  2. AMLODIPINE [Concomitant]
     Active Substance: AMLODIPINE BESYLATE
  3. FLUTICASONE. [Concomitant]
     Active Substance: FLUTICASONE
  4. CHLORHEXIDINE 0.12% RINSE [Concomitant]
     Active Substance: CHLORHEXIDINE

REACTIONS (2)
  - Anxiety [None]
  - Product adhesion issue [None]
